FAERS Safety Report 24714818 (Version 1)
Quarter: 2024Q4

REPORT INFORMATION
  Report Type: Spontaneous
  Country: US (occurrence: US)
  Receive Date: 20241210
  Receipt Date: 20241210
  Transmission Date: 20250115
  Serious: Yes (Hospitalization)
  Sender: AMGEN
  Company Number: US-AMGEN-USASP2024239566

PATIENT
  Sex: Female

DRUGS (11)
  1. RAVICTI [Suspect]
     Active Substance: GLYCEROL PHENYLBUTYRATE
     Indication: Amino acid metabolism disorder
     Dosage: 3.46 MILLILITER, TID (3.8 G TOTAL/: 1. 1 GRAMS/M L 25M L BT)
  2. EPIDIOLEX [Concomitant]
     Active Substance: CANNABIDIOL
  3. NEURONTIN [Concomitant]
     Active Substance: GABAPENTIN
     Dosage: UNK, 100 MG CAPSULE
  4. TRILEPTAL [Concomitant]
     Active Substance: OXCARBAZEPINE
     Dosage: UNK, 300 MG TABLET
  5. VIMPAT [Concomitant]
     Active Substance: LACOSAMIDE
     Dosage: UNK, 100 MG TABLET
  6. ZYRTEC-D [Concomitant]
     Active Substance: CETIRIZINE HYDROCHLORIDE\PSEUDOEPHEDRINE HYDROCHLORIDE
     Dosage: UNK, 120MG TAB.SR 12H
  7. PHENOBARBITAL [Concomitant]
     Active Substance: PHENOBARBITAL
     Dosage: UNK, 100 MG
  8. CYPROHEPTADINE HYDROCHLORIDE [Concomitant]
     Active Substance: CYPROHEPTADINE HYDROCHLORIDE
     Dosage: UNK, 100 PERCENT POWDER
  9. ONDANSETRON HYDROCHLORIDE [Concomitant]
     Active Substance: ONDANSETRON HYDROCHLORIDE
     Dosage: UNK, 100 PERCENT
  10. REGLAN [Concomitant]
     Active Substance: METOCLOPRAMIDE HYDROCHLORIDE
     Dosage: UNK, 5 MG
  11. FYCOMPA [Concomitant]
     Active Substance: PERAMPANEL
     Dosage: UNK,  2 MG

REACTIONS (2)
  - Infection [Unknown]
  - Off label use [Unknown]
